FAERS Safety Report 7005903-X (Version None)
Quarter: 2010Q3

REPORT INFORMATION
  Report Type: 
  Country: None (occurrence: None)
  Receive Date: 20100921
  Receipt Date: 20100909
  Transmission Date: 20110219
  Serious: Yes (Other)
  Sender: FDA-Public Use
  Company Number: PHHY2010JP59874

PATIENT
  Sex: Male

DRUGS (7)
  1. AFINITOR [Suspect]
     Indication: METASTATIC RENAL CELL CARCINOMA
     Dosage: 10 MG DAILY
     Route: 048
     Dates: start: 20100526, end: 20100611
  2. AFINITOR [Suspect]
     Dosage: 10 MG DAILY
     Route: 048
     Dates: start: 20100625
  3. ARTIST [Concomitant]
     Dosage: 54 MG, UNK
     Route: 048
     Dates: start: 20090501
  4. LASIX [Concomitant]
     Dosage: 20 MG, UNK
     Route: 048
     Dates: start: 20090501
  5. ROCALTROL [Concomitant]
     Dosage: 0.5?G
     Route: 048
     Dates: start: 20090501
  6. PRECIPITATED CALCIUM CARBONATE [Concomitant]
     Dosage: 3 G, UNK
     Route: 048
     Dates: start: 20090501
  7. ZYLORIC [Concomitant]
     Dosage: 50 MG, UNK
     Route: 048
     Dates: start: 20090501

REACTIONS (2)
  - C-REACTIVE PROTEIN INCREASED [None]
  - PLATELET DISORDER [None]
